FAERS Safety Report 13905611 (Version 1)
Quarter: 2017Q3

REPORT INFORMATION
  Report Type: Spontaneous
  Country: ZA (occurrence: ZA)
  Receive Date: 20170825
  Receipt Date: 20170825
  Transmission Date: 20171127
  Serious: Yes (Life-Threatening, Hospitalization, Other)
  Sender: FDA-Public Use
  Company Number: ZA-TEVA-798382ISR

PATIENT
  Sex: Male
  Weight: 55 kg

DRUGS (11)
  1. ETHAMBUTOL [Suspect]
     Active Substance: ETHAMBUTOL HYDROCHLORIDE
     Indication: TUBERCULOSIS
     Dosage: 1.2 MILLIGRAM DAILY;
     Route: 065
     Dates: start: 20170520
  2. EFAVIRENZ [Concomitant]
     Active Substance: EFAVIRENZ
  3. PYRAZINAMID [Suspect]
     Active Substance: PYRAZINAMIDE
     Indication: TUBERCULOSIS
     Dosage: 2 GRAM DAILY;
     Route: 065
     Dates: start: 20170711
  4. FLUCONAZOLE. [Suspect]
     Active Substance: FLUCONAZOLE
     Indication: PRODUCT USED FOR UNKNOWN INDICATION
     Dosage: 200 MILLIGRAM DAILY;
     Route: 065
  5. LEVOFLOXACIN. [Suspect]
     Active Substance: LEVOFLOXACIN
     Indication: TUBERCULOSIS
     Dosage: 400 MILLIGRAM DAILY;
     Route: 065
     Dates: start: 20170520
  6. TERIZIDONE [Suspect]
     Active Substance: TERIZIDONE
     Indication: TUBERCULOSIS
     Dosage: 750 MILLIGRAM DAILY;
     Route: 065
     Dates: start: 20170520
  7. WARFARIN [Suspect]
     Active Substance: WARFARIN
     Indication: PRODUCT USED FOR UNKNOWN INDICATION
     Route: 065
  8. DELAMANID [Suspect]
     Active Substance: DELAMANID
     Indication: TUBERCULOSIS
     Dosage: 200 MILLIGRAM DAILY;
     Route: 065
     Dates: start: 20170711
  9. INH ISONIAZIDE [Suspect]
     Active Substance: ISONIAZID
     Indication: TUBERCULOSIS
     Dosage: 300 MILLIGRAM DAILY;
     Route: 065
     Dates: start: 20170520
  10. FDC TENOFOVIR [Concomitant]
     Active Substance: TENOFOVIR DISOPROXIL FUMARATE
     Route: 065
  11. EMTRICITABINE [Concomitant]
     Active Substance: EMTRICITABINE

REACTIONS (10)
  - Nosocomial infection [Unknown]
  - Sepsis [Unknown]
  - Immune reconstitution inflammatory syndrome [Unknown]
  - Pulmonary embolism [Unknown]
  - Pyrexia [Unknown]
  - Malaise [Unknown]
  - Sinus tachycardia [Unknown]
  - Nasal flaring [Unknown]
  - Lymphadenopathy [Unknown]
  - Dyspnoea [Unknown]
